FAERS Safety Report 9143964 (Version 1)
Quarter: 2013Q1

REPORT INFORMATION
  Report Type: Spontaneous
  Country: AR (occurrence: AR)
  Receive Date: 20130306
  Receipt Date: 20130306
  Transmission Date: 20140127
  Serious: Yes (Hospitalization)
  Sender: FDA-Public Use
  Company Number: PHHY2013AR021940

PATIENT
  Sex: Female

DRUGS (1)
  1. DIOVAN D [Suspect]
     Indication: HYPERTENSION
     Dosage: 1 DF(160/25MG), DAILY
     Route: 048
     Dates: end: 201209

REACTIONS (2)
  - General physical health deterioration [Recovered/Resolved]
  - Renal disorder [Recovered/Resolved]
